FAERS Safety Report 9932567 (Version 1)
Quarter: 2014Q1

REPORT INFORMATION
  Report Type: Spontaneous
  Country: US (occurrence: US)
  Receive Date: 20140228
  Receipt Date: 20140228
  Transmission Date: 20141002
  Serious: No
  Sender: FDA-Public Use
  Company Number: US-GLAXOSMITHKLINE-A1021157A

PATIENT
  Sex: Female

DRUGS (5)
  1. LAMOTRIGINE [Suspect]
     Indication: MIGRAINE
     Dosage: 150MG TWICE PER DAY
     Route: 048
     Dates: end: 20130411
  2. ADDERALL [Suspect]
     Dosage: 30MG PER DAY
     Route: 048
     Dates: start: 201210, end: 20130411
  3. AMBIEN [Suspect]
     Dosage: 12.5MG PER DAY
     Route: 048
     Dates: start: 2012, end: 20130411
  4. CELEXA [Suspect]
     Indication: ANXIETY
     Dosage: 60MG PER DAY
     Route: 048
     Dates: end: 20130411
  5. NAPROXEN + SUMATRIPTAN SUCCINATE [Suspect]
     Indication: MIGRAINE
     Dates: end: 20130411

REACTIONS (13)
  - Confusional state [Recovering/Resolving]
  - Dizziness [Unknown]
  - Fall [Unknown]
  - Contusion [Unknown]
  - Trismus [Unknown]
  - Sensory disturbance [Unknown]
  - Pain [Unknown]
  - Fear [Unknown]
  - Abnormal dreams [Unknown]
  - Nausea [Unknown]
  - Ageusia [Unknown]
  - Anosmia [Unknown]
  - Disease progression [Unknown]
